FAERS Safety Report 8064953-5 (Version None)
Quarter: 2012Q1

REPORT INFORMATION
  Report Type: 
  Country: None (occurrence: None)
  Receive Date: 20120124
  Receipt Date: 20120117
  Transmission Date: 20120608
  Serious: No
  Sender: FDA-Public Use
  Company Number: US-BIOGENIDEC-2012BI002022

PATIENT
  Age: 59 Year
  Sex: Male

DRUGS (4)
  1. TYSABRI [Suspect]
     Indication: MULTIPLE SCLEROSIS
     Route: 042
     Dates: start: 20050111, end: 20050211
  2. TYSABRI [Suspect]
     Route: 042
     Dates: start: 20070403, end: 20100211
  3. TYSABRI [Suspect]
     Route: 042
     Dates: start: 20110809
  4. AVONEX [Concomitant]
     Indication: MULTIPLE SCLEROSIS
     Route: 030

REACTIONS (1)
  - DEMENTIA [None]
